FAERS Safety Report 7692360-3 (Version None)
Quarter: 2011Q3

REPORT INFORMATION
  Report Type: 
  Country: None (occurrence: None)
  Receive Date: 20110818
  Receipt Date: 20110803
  Transmission Date: 20111222
  Serious: Yes (Hospitalization)
  Sender: FDA-Public Use
  Company Number: US-BAYER-2011-070149

PATIENT
  Age: 90 Year
  Sex: Female
  Weight: 54.422 kg

DRUGS (4)
  1. CELEBREX [Suspect]
     Indication: PAIN IN EXTREMITY
     Dosage: 200 MG, QD
     Route: 048
  2. ASPIRIN [Suspect]
     Indication: PRODUCT USED FOR UNKNOWN INDICATION
     Dosage: 0.5 DF, UNK
  3. DIURETICS [Concomitant]
  4. COUMADIN [Concomitant]

REACTIONS (10)
  - GASTROOESOPHAGEAL REFLUX DISEASE [None]
  - FAECES DISCOLOURED [None]
  - ARTHRITIS [None]
  - DYSPNOEA [None]
  - CARDIAC DISORDER [None]
  - HYPERTENSION [None]
  - ASTHENIA [None]
  - GASTRIC ULCER HAEMORRHAGE [None]
  - HAEMORRHAGE [None]
  - PAIN IN EXTREMITY [None]
